FAERS Safety Report 4812257-3 (Version None)
Quarter: 2005Q4

REPORT INFORMATION
  Report Type: 
  Country: None (occurrence: None)
  Receive Date: 20051028
  Receipt Date: 20040928
  Transmission Date: 20060501
  Serious: No
  Sender: FDA-Public Use
  Company Number: US-GLAXOSMITHKLINE-A0527608A

PATIENT
  Age: 75 Year
  Sex: Female

DRUGS (4)
  1. ADVAIR DISKUS 100/50 [Suspect]
     Indication: EMPHYSEMA
     Dosage: 1PUFF TWICE PER DAY
     Route: 055
  2. LIPITOR [Concomitant]
  3. BLOOD PRESSURE MEDICATION [Concomitant]
  4. LORATADINE [Concomitant]

REACTIONS (4)
  - ARTHRALGIA [None]
  - EAR CONGESTION [None]
  - MYALGIA [None]
  - NASOPHARYNGITIS [None]
